FAERS Safety Report 6628714-3 (Version None)
Quarter: 2010Q1

REPORT INFORMATION
  Report Type: 
  Country: None (occurrence: None)
  Receive Date: 20100311
  Receipt Date: 20100301
  Transmission Date: 20100710
  Serious: Yes (Other)
  Sender: FDA-Public Use
  Company Number: US-JNJFOC-20100108624

PATIENT
  Sex: Female

DRUGS (2)
  1. REMICADE [Suspect]
     Indication: PSORIASIS
     Route: 042
  2. REMICADE [Suspect]
     Route: 042

REACTIONS (8)
  - ARTHROPATHY [None]
  - BLADDER TRANSITIONAL CELL CARCINOMA [None]
  - BURSITIS [None]
  - HYPERTENSION [None]
  - MEDICAL DEVICE COMPLICATION [None]
  - PSORIASIS [None]
  - ROTATOR CUFF SYNDROME [None]
  - WEIGHT INCREASED [None]
